FAERS Safety Report 24140071 (Version 1)
Quarter: 2024Q3

REPORT INFORMATION
  Report Type: Spontaneous
  Country: US (occurrence: US)
  Receive Date: 20240726
  Receipt Date: 20240726
  Transmission Date: 20241017
  Serious: No
  Sender: NOVAST
  Company Number: US-NOVAST LABORATORIES INC.-2024NOV000218

PATIENT

DRUGS (1)
  1. DILTIAZEM HYDROCHLORIDE [Suspect]
     Active Substance: DILTIAZEM HYDROCHLORIDE
     Indication: Arrhythmia
     Dosage: UNK
     Route: 065
     Dates: start: 202212

REACTIONS (9)
  - Gastrooesophageal reflux disease [Recovered/Resolved]
  - Choking [Recovered/Resolved]
  - Cough [Recovered/Resolved]
  - Heart rate irregular [Unknown]
  - Ventricular tachycardia [Recovered/Resolved]
  - Dyspepsia [Recovered/Resolved]
  - Ventricular extrasystoles [Recovered/Resolved]
  - Product substitution issue [Unknown]
  - Drug ineffective for unapproved indication [Unknown]
